FAERS Safety Report 11062423 (Version 2)
Quarter: 2015Q2

REPORT INFORMATION
  Report Type: Spontaneous
  Country: BR (occurrence: BR)
  Receive Date: 20150424
  Receipt Date: 20150513
  Transmission Date: 20150821
  Serious: Yes (Death, Other)
  Sender: FDA-Public Use
  Company Number: BR-SA-2015SA052539

PATIENT
  Age: 72 Year
  Sex: Male
  Weight: 78 kg

DRUGS (9)
  1. LANTUS [Suspect]
     Active Substance: INSULIN GLARGINE
     Indication: TYPE 1 DIABETES MELLITUS
     Dosage: 10 IU IN THE MORNING AND 10 IU AT NIGHT
     Route: 065
     Dates: start: 2005, end: 20051214
  2. LANTUS [Suspect]
     Active Substance: INSULIN GLARGINE
     Indication: TYPE 2 DIABETES MELLITUS
     Dosage: 10 IU IN THE MORNING AND 10 IU AT NIGHT
     Route: 065
     Dates: start: 2005, end: 20051214
  3. GLIFAGE [Suspect]
     Active Substance: METFORMIN HYDROCHLORIDE
     Indication: TYPE 1 DIABETES MELLITUS
     Dosage: STRENGTH: 500 MG
     Route: 048
     Dates: end: 2005
  4. METFORMIN [Suspect]
     Active Substance: METFORMIN HYDROCHLORIDE
     Indication: TYPE 1 DIABETES MELLITUS
     Route: 048
     Dates: end: 2005
  5. METFORMIN [Suspect]
     Active Substance: METFORMIN HYDROCHLORIDE
     Indication: TYPE 2 DIABETES MELLITUS
     Route: 048
     Dates: end: 2005
  6. OPTIPEN [Concomitant]
     Active Substance: DEVICE
     Dates: start: 2005
  7. DAONIL [Suspect]
     Active Substance: GLYBURIDE
     Indication: TYPE 2 DIABETES MELLITUS
     Route: 048
     Dates: end: 2005
  8. GLIFAGE [Suspect]
     Active Substance: METFORMIN HYDROCHLORIDE
     Indication: TYPE 2 DIABETES MELLITUS
     Dosage: STRENGTH: 500 MG
     Route: 048
     Dates: end: 2005
  9. DAONIL [Suspect]
     Active Substance: GLYBURIDE
     Indication: TYPE 1 DIABETES MELLITUS
     Route: 048
     Dates: end: 2005

REACTIONS (9)
  - Abdominal distension [Unknown]
  - Wrong technique in drug usage process [Unknown]
  - Gangrene [Recovering/Resolving]
  - Poor peripheral circulation [Recovering/Resolving]
  - Hepatotoxicity [Unknown]
  - Hepatocellular carcinoma [Fatal]
  - Pain [Unknown]
  - Multi-organ failure [Fatal]
  - Drug administration error [Unknown]

NARRATIVE: CASE EVENT DATE: 2005
